FAERS Safety Report 16015259 (Version 1)
Quarter: 2019Q1

REPORT INFORMATION
  Report Type: Spontaneous
  Country: UG (occurrence: UG)
  Receive Date: 20190228
  Receipt Date: 20190228
  Transmission Date: 20190418
  Serious: Yes (Hospitalization)
  Sender: FDA-Public Use
  Company Number: UG-TERSERA THERAPEUTICS LLC-2019TRS000063

PATIENT

DRUGS (1)
  1. ZOLADEX [Suspect]
     Active Substance: GOSERELIN ACETATE
     Indication: ENDOMETRIOSIS
     Dosage: 3.6 MILLIGRAM, MONTHLY
     Route: 058

REACTIONS (2)
  - Discomfort [Not Recovered/Not Resolved]
  - Leiomyoma [Not Recovered/Not Resolved]
